FAERS Safety Report 9116047 (Version 10)
Quarter: 2014Q1

REPORT INFORMATION
  Report Type: Spontaneous
  Country: US (occurrence: US)
  Receive Date: 20130225
  Receipt Date: 20140124
  Transmission Date: 20141002
  Serious: Yes (Life-Threatening, Hospitalization)
  Sender: FDA-Public Use
  Company Number: US-ROCHE-1193399

PATIENT
  Age: 53 Year
  Sex: Female
  Weight: 61.29 kg

DRUGS (12)
  1. XOLAIR [Suspect]
     Indication: ASTHMA
     Route: 058
     Dates: start: 20120125
  2. XOLAIR [Suspect]
     Route: 058
     Dates: start: 20130218, end: 20130218
  3. QVAR [Concomitant]
     Indication: ASTHMA
     Dosage: DOSE : 80 MG 2 PUFFS EVERDAY
     Route: 050
     Dates: start: 20090605
  4. QVAR [Concomitant]
     Dosage: DOSE : 80 MG 2 PUFFS EVERDAY
     Route: 050
     Dates: start: 20090506
  5. ALBUTEROL [Concomitant]
     Indication: ASTHMA
     Dosage: 2 PUFFS 4-6 HOURS AS REQUIRED.
     Route: 050
     Dates: start: 20090430
  6. VIVELLE-DOT [Concomitant]
     Route: 062
  7. VAGIFEM [Concomitant]
     Route: 050
  8. AMBIEN [Concomitant]
     Indication: SLEEP DISORDER
     Route: 048
     Dates: start: 2011
  9. ZYRTEC [Concomitant]
     Indication: HYPERSENSITIVITY
     Route: 048
     Dates: start: 201302
  10. ZADITOR [Concomitant]
     Indication: HYPERSENSITIVITY
     Route: 047
     Dates: start: 201305
  11. SINGULAIR [Concomitant]
     Indication: ASTHMA
     Route: 048
     Dates: start: 20090903
  12. SINGULAIR [Concomitant]
     Route: 048
     Dates: start: 20090309

REACTIONS (9)
  - Anaphylactic reaction [Recovered/Resolved]
  - Chest discomfort [Recovered/Resolved]
  - Heart rate increased [Recovered/Resolved]
  - Cough [Recovered/Resolved]
  - Pruritus [Recovered/Resolved]
  - Rash [Recovered/Resolved]
  - Chills [Unknown]
  - Ear pain [Unknown]
  - Headache [Unknown]
